FAERS Safety Report 7297920-X (Version None)
Quarter: 2011Q1

REPORT INFORMATION
  Report Type: 
  Country: None (occurrence: None)
  Receive Date: 20110217
  Receipt Date: 20110214
  Transmission Date: 20110831
  Serious: Yes (Hospitalization, Other)
  Sender: FDA-Public Use
  Company Number: US-JNJFOC-20110204715

PATIENT
  Sex: Male
  Weight: 99.79 kg

DRUGS (5)
  1. DURAGESIC-50 [Suspect]
     Route: 062
  2. DURAGESIC-50 [Suspect]
     Indication: BACK PAIN
     Route: 062
  3. UNSPECIFIED GENERIC DRUG [Concomitant]
     Indication: PROSTATOMEGALY
     Route: 065
  4. UNKNOWN MEDICATION FOR ATRIAL FIBRILLATION [Concomitant]
     Indication: ATRIAL FIBRILLATION
     Route: 065
  5. FENTANYL-100 [Suspect]
     Indication: BACK PAIN
     Route: 062

REACTIONS (6)
  - CORONARY ARTERY OCCLUSION [None]
  - WITHDRAWAL SYNDROME [None]
  - TREMOR [None]
  - DYSPNOEA [None]
  - ATRIAL FIBRILLATION [None]
  - MALAISE [None]
